FAERS Safety Report 4791959-1 (Version None)
Quarter: 2005Q4

REPORT INFORMATION
  Report Type: 
  Country: None (occurrence: None)
  Receive Date: 20051005
  Receipt Date: 20050921
  Transmission Date: 20060501
  Serious: Yes (Hospitalization)
  Sender: FDA-Public Use
  Company Number: 217550

PATIENT
  Age: 58 Year
  Sex: Female
  Weight: 74.5 kg

DRUGS (3)
  1. AVASTIN [Suspect]
     Indication: COLON CANCER
     Dosage: 559 MG, Q3W, INTRAVENOUS
     Route: 042
     Dates: start: 20050809
  2. CAPECITABINE (CAPECITABINE) [Suspect]
     Indication: COLON CANCER
     Dosage: 1800 MG, BID, ORAL
     Route: 048
     Dates: start: 20050809
  3. OXALIPLATIN (OXALIPLATIN) [Suspect]
     Indication: COLON CANCER
     Dosage: 245 MG, Q3W, INTRAVENOUS
     Route: 042
     Dates: start: 20050809

REACTIONS (7)
  - ABDOMINAL PAIN LOWER [None]
  - ANASTOMOTIC COMPLICATION [None]
  - ENTERITIS [None]
  - ISCHAEMIA [None]
  - MUCOSAL INFLAMMATION [None]
  - POST PROCEDURAL COMPLICATION [None]
  - PYREXIA [None]
